FAERS Safety Report 24602643 (Version 2)
Quarter: 2024Q4

REPORT INFORMATION
  Report Type: Spontaneous
  Country: SE (occurrence: SE)
  Receive Date: 20241111
  Receipt Date: 20241216
  Transmission Date: 20250115
  Serious: Yes (Other)
  Sender: BAXTER
  Company Number: SE-EMA-DD-20241029-7482645-130603

PATIENT
  Age: 80 Year
  Sex: Female

DRUGS (19)
  1. CYCLOPHOSPHAMIDE [Suspect]
     Active Substance: CYCLOPHOSPHAMIDE
     Indication: Product used for unknown indication
     Dosage: UNK
     Route: 065
  2. CYCLOPHOSPHAMIDE [Suspect]
     Active Substance: CYCLOPHOSPHAMIDE
     Indication: Plasma cell myeloma
     Dosage: UNK, DOSAGE1: UNIT=NOT AVAILABLE, (DATE AND TIME OF START OF DRUG: MAR-2024)
     Route: 065
  3. DEXAMETHASONE [Suspect]
     Active Substance: DEXAMETHASONE
     Indication: Product used for unknown indication
     Dosage: UNK
     Route: 065
  4. DEXAMETHASONE [Suspect]
     Active Substance: DEXAMETHASONE
     Indication: Plasma cell myeloma
     Dosage: UNK DOSAGE1: UNIT=NOT AVAILABLE, (DATE AND TIME OF START OF DRUG: MAR-2024)
     Route: 065
  5. KYPROLIS [Suspect]
     Active Substance: CARFILZOMIB
     Indication: Product used for unknown indication
     Dosage: 70 MILLIGRAM/SQ. METER, QWK (ONCE/WEEK FOR THREE WEEKS IN EACH TREAMTENT, (DOSAGE1: UNIT=VIAL - LYOP
     Route: 065
  6. KYPROLIS [Suspect]
     Active Substance: CARFILZOMIB
     Indication: Plasma cell myeloma
     Dosage: 20 MILLIGRAM/SQ. METER 40 MG 60 MG KYPROLIS, DOSAGE1/UNIT=VIAL - LYOPHILIZED, (DATE AND TIME OF STAR
     Route: 065
  7. KYPROLIS [Suspect]
     Active Substance: CARFILZOMIB
     Dosage: 70 MILLIGRAM/SQ. METER, QWK (ONCE/WEEK FOR THREE WEEKS IN EACH TREATMENT)140 MG, 60 MG KYPROLIS, DOS
     Route: 065
  8. KYPROLIS [Suspect]
     Active Substance: CARFILZOMIB
     Dosage: UNK 10 MG KYPROLIS, DOSAGE3/ UNIT=VIAL - LYOPHILIZED, (DATE AND TIME OF START OF DRUG: 2024)
     Route: 065
  9. KYPROLIS [Suspect]
     Active Substance: CARFILZOMIB
     Dosage: UNK 10 MG KYPROLIS, DOSAGE4/ UNIT=VIAL - LYOPHILIZED, (DATE AND TIME OF START OF DRUG: 2024)
     Route: 065
  10. KYPROLIS [Suspect]
     Active Substance: CARFILZOMIB
     Dosage: 40 MILLIGRAM, QWK QWK (ONCE/WEEK FOR THREE WEEKS IN EACH TREAMTENT) (40 MG OR 20 MG/SQ.M)), DOSAGE1/
     Route: 065
  11. KYPROLIS [Suspect]
     Active Substance: CARFILZOMIB
     Dosage: 140 MILLIGRAM, QWK QWK (ONCE/WEEK FOR THREE WEEKS IN EACH TREAMTENT) (140 MG I.E. 70 MG/SQ.M.), DOSA
     Route: 065
  12. SULFAMETHOXAZOLE\TRIMETHOPRIM [Concomitant]
     Active Substance: SULFAMETHOXAZOLE\TRIMETHOPRIM
     Indication: Antifungal prophylaxis
     Dosage: 1 DAY, UNK UNK, BID 1 X 2 ON MONDAYS AND THURSDAYS
     Route: 065
  13. OMEPRAZOLE [Concomitant]
     Active Substance: OMEPRAZOLE
     Indication: Gastrooesophageal reflux disease
     Dosage: 20 MILLIGRAM, AS NECESSARY
     Route: 065
  14. ONDANSETRON [Concomitant]
     Active Substance: ONDANSETRON
     Indication: Nausea
     Dosage: 4 MILLIGRAM, AS NECESSARY 1 AS NEEDED FOR NAUSEA
     Route: 065
  15. ZOPICLONE [Concomitant]
     Active Substance: ZOPICLONE
     Indication: Sleep disorder
     Dosage: UNK UNK, AS NECESSARY 1 IF NECESSARY
     Route: 065
  16. LOSARTAN [Concomitant]
     Active Substance: LOSARTAN
     Indication: Hypotension
     Dosage: 12.5 MILLIGRAM (12.5 MG X1), (DATE AND TIME OF START OF DRUG: MAR-2024)
     Route: 065
  17. POTASSIUM [Concomitant]
     Active Substance: POTASSIUM
     Dosage: UNK
     Route: 065
  18. GABAPENTIN [Concomitant]
     Active Substance: GABAPENTIN
     Indication: Neuralgia
     Dosage: 100 MILLIGRAM (2+0+1+0) AND 300 MG 1+2+1+0, (DATE AND TIME OF START OF DRUG: JAN-2024)
     Route: 065
  19. ACYCLOVIR [Concomitant]
     Active Substance: ACYCLOVIR
     Indication: Herpes zoster
     Dosage: 400 MILLIGRAM (400 MG 1 X 2), (DATE AND TIME OF START OF DRUG: MAY-2024)
     Route: 065

REACTIONS (2)
  - Haemolysis [Recovered/Resolved]
  - Off label use [Unknown]
